FAERS Safety Report 5656725-3 (Version None)
Quarter: 2008Q1

REPORT INFORMATION
  Report Type: 
  Country: None (occurrence: None)
  Receive Date: 20080310
  Receipt Date: 20080227
  Transmission Date: 20080703
  Serious: Yes (Hospitalization, Disabling)
  Sender: FDA-Public Use
  Company Number: JP-NOVOPROD-272718

PATIENT
  Age: 22 Year
  Sex: Male

DRUGS (1)
  1. NOVORAPID 30 MIX CHU FLEXPEN [Suspect]
     Indication: SUICIDE ATTEMPT

REACTIONS (2)
  - HYPOGLYCAEMIC ENCEPHALOPATHY [None]
  - SUICIDE ATTEMPT [None]
